FAERS Safety Report 6554916-0 (Version None)
Quarter: 2010Q1

REPORT INFORMATION
  Report Type: 
  Country: None (occurrence: None)
  Receive Date: 20100126
  Receipt Date: 20100113
  Transmission Date: 20100710
  Serious: Yes (Disabling)
  Sender: FDA-Public Use
  Company Number: 2010-00062

PATIENT
  Age: 64 Year
  Sex: Male
  Weight: 112 kg

DRUGS (5)
  1. SIMVASTATIN [Suspect]
     Indication: HYPERCHOLESTEROLAEMIA
     Dosage: 40 MG, 1 IN 1 D, ORAL
     Route: 048
     Dates: start: 20070101
  2. SIMVASTATIN [Suspect]
     Indication: PROSTATIC DISORDER
     Dosage: 40 MG, 1 IN 1 D, ORAL
     Route: 048
     Dates: start: 20070101
  3. LIPITOR [Suspect]
     Indication: HYPERCHOLESTEROLAEMIA
  4. ALFUZOSIN HCL [Concomitant]
  5. FINASTERIDE [Concomitant]

REACTIONS (1)
  - DEMENTIA ALZHEIMER'S TYPE [None]
